FAERS Safety Report 10269741 (Version 4)
Quarter: 2014Q4

REPORT INFORMATION
  Report Type: Report from Study
  Country: US (occurrence: US)
  Receive Date: 20140701
  Receipt Date: 20141022
  Transmission Date: 20150528
  Serious: No
  Sender: FDA-Public Use
  Company Number: US-AMGEN-USASP2014044554

PATIENT
  Age: 38 Year
  Sex: Female
  Weight: 111 kg

DRUGS (1)
  1. ENBREL [Suspect]
     Active Substance: ETANERCEPT
     Indication: PSORIASIS
     Dosage: 50 MG, 2 TIMES/WK
     Route: 058
     Dates: start: 20140605

REACTIONS (10)
  - Gait disturbance [Not Recovered/Not Resolved]
  - Feeling of body temperature change [Not Recovered/Not Resolved]
  - Exercise tolerance decreased [Not Recovered/Not Resolved]
  - Bronchitis [Not Recovered/Not Resolved]
  - Viral infection [Unknown]
  - Tooth extraction [Not Recovered/Not Resolved]
  - Weight increased [Not Recovered/Not Resolved]
  - Chest pain [Not Recovered/Not Resolved]
  - Exostosis [Unknown]
  - Pain [Not Recovered/Not Resolved]

NARRATIVE: CASE EVENT DATE: 20140605
